FAERS Safety Report 22061446 (Version 1)
Quarter: 2023Q1

REPORT INFORMATION
  Report Type: Report from Study
  Country: GB (occurrence: GB)
  Receive Date: 20230304
  Receipt Date: 20230304
  Transmission Date: 20230418
  Serious: Yes (Hospitalization)
  Sender: FDA-Public Use
  Company Number: GB-ABBVIE-22K-167-4441595-00

PATIENT
  Age: 83 Year
  Sex: Male

DRUGS (9)
  1. CARBIDOPA\LEVODOPA [Suspect]
     Active Substance: CARBIDOPA\LEVODOPA
     Indication: Parkinson^s disease
     Dosage: DAY PUMP (8AM TO 8PM), MD 4.5, CR 4, ED 3 NIGHT (8PM-8AM)- CR 2.7, ED 2.7, 20MG/5MG
     Route: 050
  2. CARBIDOPA\LEVODOPA [Suspect]
     Active Substance: CARBIDOPA\LEVODOPA
     Dosage: DUODOPA 20MGS/5MGS; DAY PUMP: C.R 4.3MLS, NIGHT PUMP:2.7MLS, PUMP CHANGED AT 8AM AND 8PM
     Route: 050
  3. FLUCLOXACILLIN [Suspect]
     Active Substance: FLUCLOXACILLIN
     Indication: Stoma site infection
     Route: 065
     Dates: end: 2022
  4. BENSERAZIDE HYDROCHLORIDE\LEVODOPA [Concomitant]
     Active Substance: BENSERAZIDE HYDROCHLORIDE\LEVODOPA
     Indication: Product used for unknown indication
     Dosage: AT 8 AM, 12 NOON, 4 PM AND 8 PM; ;
  5. BENSERAZIDE HYDROCHLORIDE\LEVODOPA [Concomitant]
     Active Substance: BENSERAZIDE HYDROCHLORIDE\LEVODOPA
     Indication: Product used for unknown indication
     Dosage: AT 8 AM, 12 NOON, 4 PM AND 8 PM
  6. BENSERAZIDE HYDROCHLORIDE\LEVODOPA [Concomitant]
     Active Substance: BENSERAZIDE HYDROCHLORIDE\LEVODOPA
     Indication: Product used for unknown indication
     Dosage: AT 6 AM, 12 NOON;
  7. BENSERAZIDE HYDROCHLORIDE\LEVODOPA [Concomitant]
     Active Substance: BENSERAZIDE HYDROCHLORIDE\LEVODOPA
     Indication: Product used for unknown indication
     Dosage: AT 8 PM;
  8. BENSERAZIDE HYDROCHLORIDE\LEVODOPA [Concomitant]
     Active Substance: BENSERAZIDE HYDROCHLORIDE\LEVODOPA
     Indication: Product used for unknown indication
     Dosage: AT 6 AM, 12 NOON
  9. BENSERAZIDE HYDROCHLORIDE\LEVODOPA [Concomitant]
     Active Substance: BENSERAZIDE HYDROCHLORIDE\LEVODOPA
     Indication: Product used for unknown indication
     Dosage: AT 8 PM

REACTIONS (23)
  - Stoma site infection [Recovered/Resolved]
  - Device occlusion [Not Recovered/Not Resolved]
  - Abnormal behaviour [Recovered/Resolved]
  - Device issue [Not Recovered/Not Resolved]
  - Malaise [Not Recovered/Not Resolved]
  - Wrong technique in device usage process [Not Recovered/Not Resolved]
  - Device issue [Not Recovered/Not Resolved]
  - Product storage error [Not Recovered/Not Resolved]
  - Fall [Unknown]
  - Stoma site reaction [Not Recovered/Not Resolved]
  - Gait disturbance [Unknown]
  - Stoma site erythema [Not Recovered/Not Resolved]
  - Stoma site oedema [Not Recovered/Not Resolved]
  - Stoma site discharge [Not Recovered/Not Resolved]
  - Stoma site infection [Not Recovered/Not Resolved]
  - Stoma site haemorrhage [Not Recovered/Not Resolved]
  - Confusional state [Not Recovered/Not Resolved]
  - Parkinsonian gait [Recovering/Resolving]
  - Dyskinesia [Unknown]
  - Hypnopompic hallucination [Unknown]
  - Hallucination, visual [Recovered/Resolved]
  - Posture abnormal [Unknown]
  - COVID-19 [Recovered/Resolved]

NARRATIVE: CASE EVENT DATE: 20220101
